FAERS Safety Report 9177313 (Version 4)
Quarter: 2014Q1

REPORT INFORMATION
  Report Type: Spontaneous
  Country: US (occurrence: US)
  Receive Date: 20130321
  Receipt Date: 20140318
  Transmission Date: 20141002
  Serious: Yes (Other)
  Sender: FDA-Public Use
  Company Number: US-PFIZER INC-2013089115

PATIENT
  Age: 53 Year
  Sex: Male
  Weight: 92.52 kg

DRUGS (3)
  1. SUTENT [Suspect]
     Indication: RENAL CANCER
     Dosage: 37.5 MG, DAILY, (12.5MG 3X/DAY)
     Dates: start: 20121206
  2. SUTENT [Suspect]
     Dosage: 50 MG, 1X/DAY
     Route: 048
     Dates: start: 20130114, end: 20130304
  3. SUTENT [Suspect]
     Dosage: 37.5 MG, 1X/DAY
     Dates: start: 20130305

REACTIONS (4)
  - Liver function test abnormal [Recovered/Resolved]
  - Tooth disorder [Unknown]
  - Disease progression [Unknown]
  - Renal cancer [Unknown]
